FAERS Safety Report 6068581-2 (Version None)
Quarter: 2009Q1

REPORT INFORMATION
  Report Type: 
  Country: None (occurrence: None)
  Receive Date: 20090206
  Receipt Date: 20090127
  Transmission Date: 20090719
  Serious: Yes (Other)
  Sender: FDA-Public Use
  Company Number: FR-PFIZER INC-2008151511

PATIENT

DRUGS (1)
  1. TRIFLUCAN [Suspect]
     Indication: GASTROINTESTINAL FUNGAL INFECTION
     Dosage: 50 MG, 1X/DAY

REACTIONS (1)
  - PANIC ATTACK [None]
